FAERS Safety Report 10836307 (Version 1)
Quarter: 2015Q1

REPORT INFORMATION
  Report Type: Spontaneous
  Country: US (occurrence: None)
  Receive Date: 20150218
  Receipt Date: 20150218
  Transmission Date: 20150721
  Serious: Yes (Other)
  Sender: FDA-Public Use
  Company Number: US-ZYDUS-006732

PATIENT
  Age: 17 Year
  Sex: Male

DRUGS (4)
  1. IMIPRAMINE (IMIPRAMINE) (IMIPRAMINE) [Suspect]
     Active Substance: IMIPRAMINE
  2. GUANFACINE (GUANFACINE) [Suspect]
     Active Substance: GUANFACINE
  3. VALPROIC ACID (VALPROIC ACID) [Suspect]
     Active Substance: VALPROIC ACID
  4. OLANZAPINE (OLANZAPINE) [Suspect]
     Active Substance: OLANZAPINE

REACTIONS (6)
  - Haemodialysis [None]
  - Pneumonia [None]
  - Overdose [None]
  - Hyperammonaemia [None]
  - Brain oedema [None]
  - Aggression [None]
